FAERS Safety Report 8183408-0 (Version None)
Quarter: 2012Q1

REPORT INFORMATION
  Report Type: 
  Country: None (occurrence: None)
  Receive Date: 20120305
  Receipt Date: 20120223
  Transmission Date: 20120608
  Serious: Yes (Hospitalization)
  Sender: FDA-Public Use
  Company Number: US-ELI_LILLY_AND_COMPANY-US201201006081

PATIENT
  Sex: Male
  Weight: 103.5 kg

DRUGS (4)
  1. OTHER PHARMA COMPANY INV DRUG [Suspect]
     Dosage: 195 MG/M2, EVERY 3 WEEKS
     Route: 042
     Dates: start: 20110629, end: 20110928
  2. PEMETREXED [Suspect]
     Dosage: 195 MG/M2, EVERY 3 WEEKS
     Route: 042
  3. PEMETREXED [Suspect]
     Indication: NON-SMALL CELL LUNG CANCER
     Dosage: 260 MG/M2, EVERY 3 WEEKS
     Route: 042
     Dates: start: 20110630
  4. OTHER PHARMA COMPANY INV DRUG [Suspect]
     Indication: NON-SMALL CELL LUNG CANCER
     Dosage: 260 MG, OTHER
     Route: 042
     Dates: start: 20110629

REACTIONS (3)
  - DEEP VEIN THROMBOSIS [None]
  - CELLULITIS [None]
  - ANAEMIA [None]
